FAERS Safety Report 9707648 (Version 1)
Quarter: 2013Q4

REPORT INFORMATION
  Report Type: Spontaneous
  Country: FR (occurrence: None)
  Receive Date: 20131121
  Receipt Date: 20131121
  Transmission Date: 20140711
  Serious: Yes (Hospitalization)
  Sender: FDA-Public Use
  Company Number: AUR-APL-2013-09626

PATIENT
  Age: 84 Year
  Sex: Male

DRUGS (5)
  1. SIMVASTATIN [Suspect]
     Indication: HYPERTENSION
     Route: 048
  2. SUTENT [Suspect]
     Indication: RENAL CANCER METASTATIC
     Dosage: ORAL AND ONGOING THERAPY
     Route: 048
     Dates: start: 20130301, end: 20130325
  3. TARKA [Suspect]
     Indication: RENAL CANCER METASTATIC
     Route: 048
  4. PARACETAMOL [Suspect]
     Indication: RENAL CANCER
     Route: 048
  5. ALLOPURINOL [Concomitant]

REACTIONS (6)
  - Thrombocytopenia [None]
  - Aspartate aminotransferase increased [None]
  - Alanine aminotransferase increased [None]
  - Blood alkaline phosphatase increased [None]
  - Gamma-glutamyltransferase increased [None]
  - Blood bilirubin increased [None]
